FAERS Safety Report 20224693 (Version 2)
Quarter: 2022Q1

REPORT INFORMATION
  Report Type: Spontaneous
  Country: US (occurrence: US)
  Receive Date: 20211223
  Receipt Date: 20220105
  Transmission Date: 20220423
  Serious: Yes (Hospitalization)
  Sender: FDA-Public Use
  Company Number: US-TEVA-2021-US-1989839

PATIENT
  Age: 74 Year
  Sex: Male

DRUGS (2)
  1. METHYLPREDNISOLONE [Suspect]
     Active Substance: METHYLPREDNISOLONE
     Indication: Arthritis
     Dosage: 40MG
     Route: 014
  2. LIDOCAINE [Concomitant]
     Active Substance: LIDOCAINE
     Indication: Arthritis
     Dosage: 5ML
     Route: 014

REACTIONS (3)
  - Bursitis infective [Recovering/Resolving]
  - Tendonitis [Recovering/Resolving]
  - Staphylococcal infection [Recovering/Resolving]
